FAERS Safety Report 19371204 (Version 5)
Quarter: 2023Q2

REPORT INFORMATION
  Report Type: Spontaneous
  Country: FR (occurrence: FR)
  Receive Date: 20210604
  Receipt Date: 20230626
  Transmission Date: 20230722
  Serious: Yes (Death, Other)
  Sender: FDA-Public Use
  Company Number: FR-ROCHE-2699740

PATIENT
  Age: 59 Year
  Sex: Female
  Weight: 50.2 kg

DRUGS (16)
  1. BEVACIZUMAB [Suspect]
     Active Substance: BEVACIZUMAB
     Indication: Non-small cell lung cancer metastatic
     Dosage: UNK
     Route: 042
     Dates: start: 20200409, end: 20200615
  2. PROLIA [Suspect]
     Active Substance: DENOSUMAB
     Indication: Product used for unknown indication
     Dosage: UNK
     Route: 065
     Dates: start: 20190211
  3. XGEVA [Suspect]
     Active Substance: DENOSUMAB
     Indication: Non-small cell lung cancer metastatic
     Dosage: UNK
     Route: 065
  4. PACLITAXEL [Suspect]
     Active Substance: PACLITAXEL
     Indication: Non-small cell lung cancer
     Dosage: UNK
     Route: 065
     Dates: start: 20200409, end: 20200615
  5. PACLITAXEL [Suspect]
     Active Substance: PACLITAXEL
     Indication: Non-small cell lung cancer metastatic
  6. ATEZOLIZUMAB [Suspect]
     Active Substance: ATEZOLIZUMAB
     Indication: Non-small cell lung cancer
     Dosage: 1200 MILLIGRAM, Q3WK
     Route: 042
     Dates: start: 20190513
  7. ATEZOLIZUMAB [Suspect]
     Active Substance: ATEZOLIZUMAB
     Indication: Non-small cell lung cancer metastatic
  8. ACETAMINOPHEN [Concomitant]
     Active Substance: ACETAMINOPHEN
     Dosage: UNK
     Dates: start: 20190805
  9. KETOPROFEN [Concomitant]
     Active Substance: KETOPROFEN
     Dosage: 0.5, QD
     Dates: start: 20200402, end: 20200404
  10. CALCIUM\CHOLECALCIFEROL [Concomitant]
     Active Substance: CALCIUM\CHOLECALCIFEROL
     Dosage: UNK
     Dates: start: 20190415
  11. TRAMADOL [Concomitant]
     Active Substance: TRAMADOL
     Dosage: UNK
  12. FLECAINIDE ACETATE [Concomitant]
     Active Substance: FLECAINIDE ACETATE
     Dosage: UNK, QD
  13. CHOLECALCIFEROL [Concomitant]
     Active Substance: CHOLECALCIFEROL
     Dosage: UNK, QD
     Dates: start: 20190211
  14. ELIQUIS [Concomitant]
     Active Substance: APIXABAN
     Dosage: UNK, QD
     Dates: start: 20200703
  15. CARBOPLATIN [Concomitant]
     Active Substance: CARBOPLATIN
     Indication: Neoplasm malignant
     Dosage: MEDICATION DOSE 420 (UNIT NOT SPECIFIED)
  16. PEMETREXED [Concomitant]
     Active Substance: PEMETREXED
     Indication: Neoplasm malignant
     Dosage: MEDICATION DOSE 725 (UNIT NOT SEPCIFIED)

REACTIONS (7)
  - Death [Fatal]
  - Cancer pain [Unknown]
  - Thrombosis [Recovered/Resolved]
  - Osteonecrosis of jaw [Recovered/Resolved]
  - Stomatitis [Recovered/Resolved]
  - Anaemia [Recovered/Resolved]
  - Aphthous ulcer [Recovered/Resolved]

NARRATIVE: CASE EVENT DATE: 20190415
